FAERS Safety Report 6110410-2 (Version None)
Quarter: 2009Q1

REPORT INFORMATION
  Report Type: 
  Country: None (occurrence: None)
  Receive Date: 20090310
  Receipt Date: 20090226
  Transmission Date: 20090719
  Serious: Yes (Other)
  Sender: FDA-Public Use
  Company Number: US-PFIZER INC-2009158798

PATIENT
  Age: 60 Year
  Sex: Female

DRUGS (2)
  1. CHANTIX [Suspect]
     Indication: SMOKING CESSATION THERAPY
     Dosage: UNK
     Route: 048
     Dates: start: 20080101, end: 20080601
  2. XANAX [Concomitant]
     Dosage: UNK

REACTIONS (2)
  - ABNORMAL BEHAVIOUR [None]
  - DIABETES INSIPIDUS [None]
